FAERS Safety Report 9159874 (Version 2)
Quarter: 2013Q2

REPORT INFORMATION
  Report Type: Spontaneous
  Country: BR (occurrence: BR)
  Receive Date: 20130313
  Receipt Date: 20130412
  Transmission Date: 20140414
  Serious: Yes (Hospitalization, Other)
  Sender: FDA-Public Use
  Company Number: PHHY2013BR024040

PATIENT
  Age: 51 Year
  Sex: Female

DRUGS (3)
  1. DIOVAN AMLO FIX [Suspect]
     Indication: HYPERTENSION
     Dosage: 1 DF(160/5MG), A DAY
  2. ABLOK PLUS [Concomitant]
     Indication: CARDIAC DISORDER
     Dosage: 1 DF, A DAY
     Route: 048
  3. ABLOK PLUS [Concomitant]
     Indication: BLOOD PRESSURE

REACTIONS (3)
  - Fall [Not Recovered/Not Resolved]
  - Ankle fracture [Recovering/Resolving]
  - Drug dependence [Recovered/Resolved]
